FAERS Safety Report 4309086-6 (Version None)
Quarter: 2004Q1

REPORT INFORMATION
  Report Type: 
  Country: None (occurrence: None)
  Receive Date: 20040302
  Receipt Date: 20031121
  Transmission Date: 20041129
  Serious: Yes (Other)
  Sender: FDA-Public Use
  Company Number: US-GLAXOSMITHKLINE-A0440829A

PATIENT
  Age: 14 Year
  Sex: Female

DRUGS (4)
  1. WELLBUTRIN [Suspect]
     Indication: DEPRESSION
     Route: 048
     Dates: start: 20030201, end: 20031107
  2. WELLBUTRIN [Suspect]
     Dosage: 300MG PER DAY
     Route: 048
     Dates: start: 20031107, end: 20031120
  3. XANAX [Concomitant]
  4. MULTIVITAMIN [Concomitant]

REACTIONS (12)
  - ANXIETY [None]
  - CLAUSTROPHOBIA [None]
  - CONFUSIONAL STATE [None]
  - CONVULSION [None]
  - DISORIENTATION [None]
  - DISTURBANCE IN ATTENTION [None]
  - DIZZINESS [None]
  - FLASHBACK [None]
  - LOSS OF CONSCIOUSNESS [None]
  - PALPITATIONS [None]
  - UNEXPECTED THERAPEUTIC DRUG EFFECT [None]
  - WEIGHT DECREASED [None]
